FAERS Safety Report 23819935 (Version 1)
Quarter: 2024Q2

REPORT INFORMATION
  Report Type: Spontaneous
  Country: GR (occurrence: GR)
  Receive Date: 20240506
  Receipt Date: 20240506
  Transmission Date: 20240716
  Serious: Yes (Hospitalization, Other)
  Sender: FDA-Public Use
  Company Number: GR-PFIZER INC-PV202400058118

PATIENT
  Sex: Male

DRUGS (4)
  1. INFLIXIMAB [Suspect]
     Active Substance: INFLIXIMAB
     Indication: Colitis ulcerative
     Dosage: RECEIVING TWO IV INFUSION (INDUCTION SCHEME)
     Route: 042
     Dates: start: 202309
  2. INFLIXIMAB [Suspect]
     Active Substance: INFLIXIMAB
     Dosage: RECEIVING TWO IV INFUSION (INDUCTION SCHEME)
     Route: 042
     Dates: start: 202309
  3. TOFACITINIB [Suspect]
     Active Substance: TOFACITINIB
     Indication: Colitis ulcerative
     Dosage: (JAK INHIBITOR) WHICH, AT THE TIME OF LAST REPORTING, HE HAD BEEN RECEIVING FOR 2 WEEKS, WITH AN INA
     Route: 065
  4. INFLIXIMAB [Suspect]
     Active Substance: INFLIXIMAB
     Indication: Colitis ulcerative
     Dosage: MAINTENANCE SCHEME
     Route: 058
     Dates: start: 2023, end: 20240325

REACTIONS (1)
  - Colitis ulcerative [Unknown]
